FAERS Safety Report 8579149 (Version 3)
Quarter: 2012Q4

REPORT INFORMATION
  Report Type: 
  Country: US (occurrence: US)
  Receive Date: 20120524
  Receipt Date: 20121024
  Transmission Date: 20130627
  Serious: Yes (Hospitalization, Disabling, Other)
  Sender: FDA-Public Use
  Company Number: US-009507513-1205USA03594

PATIENT

DRUGS (5)
  1. FOSAMAX [Suspect]
     Indication: OSTEOPOROSIS
     Dosage: 70 mg, UNK
     Route: 048
     Dates: start: 2000, end: 200603
  2. BONIVA [Suspect]
     Indication: OSTEOPOROSIS
     Dosage: 150 mg, UNK
     Route: 048
     Dates: start: 20060418, end: 201005
  3. VITAMIN D (UNSPECIFIED) [Concomitant]
     Dosage: 1200 mg, UNK
     Dates: start: 1988
  4. CALCIUM (UNSPECIFIED) [Concomitant]
     Dosage: 2000 IU, UNK
     Dates: start: 1988
  5. SYNTHROID [Concomitant]

REACTIONS (80)
  - Femoral neck fracture [Not Recovered/Not Resolved]
  - Femur fracture [Not Recovered/Not Resolved]
  - Acetabulum fracture [Unknown]
  - Surgery [Unknown]
  - Humerus fracture [Unknown]
  - Periprosthetic fracture [Unknown]
  - Spinal laminectomy [Unknown]
  - Open reduction of fracture [Unknown]
  - Knee operation [Unknown]
  - Lumbar spinal stenosis [Unknown]
  - Knee arthroplasty [Unknown]
  - Spinal fusion surgery [Unknown]
  - Hip arthroplasty [Unknown]
  - Wound treatment [Unknown]
  - Wound treatment [Unknown]
  - Hip arthroplasty [Unknown]
  - Low turnover osteopathy [Unknown]
  - Depression [Unknown]
  - Pubis fracture [Unknown]
  - Anxiety [Unknown]
  - Insomnia [Unknown]
  - Nephrolithiasis [Unknown]
  - Type 2 diabetes mellitus [Unknown]
  - Barrett^s oesophagus [Unknown]
  - Vitamin D deficiency [Recovered/Resolved]
  - Calcium deficiency [Unknown]
  - Gastrointestinal disorder [Unknown]
  - Blood pressure increased [Recovered/Resolved]
  - Pyelogram retrograde [Unknown]
  - Stag horn calculus [Unknown]
  - Stent placement [Unknown]
  - Renal stone removal [Unknown]
  - Lithotripsy [Unknown]
  - Intervertebral disc disorder [Unknown]
  - Carotid artery disease [Unknown]
  - Hiatus hernia [Unknown]
  - Breast calcifications [Unknown]
  - Biopsy [Unknown]
  - Urinary incontinence [Unknown]
  - Nephrolithiasis [Unknown]
  - Lithotripsy [Unknown]
  - Epidural injection [Unknown]
  - Body height decreased [Unknown]
  - Diverticulum [Unknown]
  - Hepatic steatosis [Unknown]
  - Haemorrhoids [Unknown]
  - Hyperparathyroidism secondary [Unknown]
  - Sleep apnoea syndrome [Unknown]
  - Cow^s milk intolerance [Unknown]
  - Chest pain [Unknown]
  - Coronary artery disease [Unknown]
  - Urinary tract infection [Unknown]
  - Cystoscopy [Unknown]
  - Rectocele [Unknown]
  - Stress urinary incontinence [Unknown]
  - Urge incontinence [Unknown]
  - Biopsy breast [Unknown]
  - Benign breast neoplasm [Unknown]
  - Pseudarthrosis [Unknown]
  - Staphylococcal infection [Unknown]
  - Impaired healing [Unknown]
  - Limb asymmetry [Unknown]
  - Device related infection [Unknown]
  - Postoperative wound complication [Unknown]
  - Needle issue [Unknown]
  - Bone disorder [Unknown]
  - Fracture delayed union [Unknown]
  - Device failure [Unknown]
  - Antibiotic therapy [Unknown]
  - Fracture nonunion [Unknown]
  - Cyst [Unknown]
  - Bone metabolism disorder [Unknown]
  - Chondropathy [Unknown]
  - Arthralgia [Not Recovered/Not Resolved]
  - Gastritis [Not Recovered/Not Resolved]
  - Headache [Unknown]
  - Constipation [Recovered/Resolved]
  - Dyspepsia [Unknown]
  - Abdominal pain [Unknown]
  - Gastrooesophageal reflux disease [Unknown]
